FAERS Safety Report 7981128-6 (Version None)
Quarter: 2011Q4

REPORT INFORMATION
  Report Type: 
  Country: None (occurrence: None)
  Receive Date: 20111212
  Receipt Date: 20111203
  Transmission Date: 20120403
  Serious: Yes (Life-Threatening)
  Sender: FDA-Public Use
  Company Number: 2011SP056452

PATIENT
  Age: 38 Year
  Sex: Male

DRUGS (1)
  1. INTRON A [Suspect]
     Indication: MALIGNANT MELANOMA
     Dates: start: 20111101

REACTIONS (9)
  - HYPOTENSION [None]
  - MULTI-ORGAN FAILURE [None]
  - LUNG INFILTRATION [None]
  - BLOOD LACTATE DEHYDROGENASE INCREASED [None]
  - ACUTE RESPIRATORY DISTRESS SYNDROME [None]
  - RENAL NECROSIS [None]
  - DISSEMINATED INTRAVASCULAR COAGULATION [None]
  - HEPATIC NECROSIS [None]
  - BLOOD CREATINE PHOSPHOKINASE INCREASED [None]
